FAERS Safety Report 9471670 (Version 1)
Quarter: 2013Q3

REPORT INFORMATION
  Report Type: Spontaneous
  Country: CN (occurrence: CN)
  Receive Date: 20130822
  Receipt Date: 20130822
  Transmission Date: 20140515
  Serious: Yes (Hospitalization, Other)
  Sender: FDA-Public Use
  Company Number: CN-BAXTER-2013BAX032361

PATIENT
  Age: 40 Year
  Sex: Female
  Weight: 50.49 kg

DRUGS (1)
  1. LOW CALCIUM PERITONEAL DIALYSIS SOLUTION ( LACTATE- G1.5%) [Suspect]
     Indication: AZOTAEMIA
     Route: 033
     Dates: start: 20130711

REACTIONS (1)
  - Chemical peritonitis [Recovered/Resolved]
